FAERS Safety Report 10183484 (Version 2)
Quarter: 2014Q2

REPORT INFORMATION
  Report Type: Spontaneous
  Country: US (occurrence: US)
  Receive Date: 20140520
  Receipt Date: 20140520
  Transmission Date: 20141212
  Serious: No
  Sender: FDA-Public Use
  Company Number: US-ASTRAZENECA-2012SE01274

PATIENT
  Age: 59 Year
  Sex: Female
  Weight: 77.1 kg

DRUGS (12)
  1. ATACAND [Suspect]
     Indication: BLOOD PRESSURE ABNORMAL
     Route: 048
  2. NEXIUM [Suspect]
     Indication: GASTROOESOPHAGEAL REFLUX DISEASE
     Route: 048
  3. NEXIUM [Suspect]
     Indication: GASTROOESOPHAGEAL REFLUX DISEASE
     Route: 048
  4. ZESTRIL [Suspect]
     Dosage: GENERIC
     Route: 048
  5. METOPROLOL [Suspect]
     Indication: BLOOD PRESSURE ABNORMAL
     Route: 048
  6. NORVASC [Suspect]
     Indication: BLOOD PRESSURE ABNORMAL
  7. VITAMIN D [Concomitant]
  8. PRAVASTATIN [Concomitant]
     Indication: BLOOD CHOLESTEROL ABNORMAL
  9. LEVOTHYROXINE [Concomitant]
     Indication: THYROID DISORDER
  10. HCTZ [Concomitant]
     Indication: BLOOD PRESSURE ABNORMAL
  11. SUPPLEMENTS [Concomitant]
  12. FISH OIL [Concomitant]

REACTIONS (5)
  - Drug hypersensitivity [Unknown]
  - Gastrooesophageal reflux disease [Unknown]
  - Nausea [Unknown]
  - Cough [Unknown]
  - Drug dose omission [Unknown]
